FAERS Safety Report 23890999 (Version 1)
Quarter: 2024Q2

REPORT INFORMATION
  Report Type: Report from Study
  Country: RU (occurrence: RU)
  Receive Date: 20240523
  Receipt Date: 20240523
  Transmission Date: 20240716
  Serious: Yes (Other)
  Sender: FDA-Public Use
  Company Number: RU-SA-2024SA151641

PATIENT

DRUGS (1)
  1. TERIFLUNOMIDE [Suspect]
     Active Substance: TERIFLUNOMIDE
     Indication: Multiple sclerosis

REACTIONS (3)
  - Intervertebral disc protrusion [Recovered/Resolved]
  - Back disorder [Recovered/Resolved]
  - Intervertebral disc disorder [Recovered/Resolved]
